FAERS Safety Report 10267082 (Version 1)
Quarter: 2014Q2

REPORT INFORMATION
  Report Type: Spontaneous
  Country: US (occurrence: None)
  Receive Date: 20140625
  Receipt Date: 20140625
  Transmission Date: 20141212
  Serious: Yes (Other)
  Sender: FDA-Public Use
  Company Number: UNT-2014-000754

PATIENT
  Age: 55 Year
  Sex: Female
  Weight: 143 kg

DRUGS (4)
  1. REMODULIN [Suspect]
     Indication: PULMONARY ARTERIAL HYPERTENSION
     Route: 058
     Dates: start: 20070710
  2. ADCIRCA (TADALAFIL) [Concomitant]
  3. OPSUMIT (MACITENTAN) [Concomitant]
  4. WARFARIN (WARFARIN) [Concomitant]

REACTIONS (4)
  - Headache [None]
  - Infusion site reaction [None]
  - Drug dose omission [None]
  - Nausea [None]
